FAERS Safety Report 8895692 (Version 1)
Quarter: 2012Q4

REPORT INFORMATION
  Report Type: 
  Country: US (occurrence: US)
  Receive Date: 20121108
  Receipt Date: 20121108
  Transmission Date: 20130627
  Serious: No
  Sender: FDA-Public Use
  Company Number: US-009507513-1210USA013923

PATIENT
  Age: 56 Year
  Sex: Male

DRUGS (4)
  1. RIBAVIRIN [Suspect]
     Indication: HEPATIC CIRRHOSIS
  2. PEGINTERFERON ALFA-2A [Suspect]
     Indication: HEPATIC CIRRHOSIS
     Dosage: unk
  3. PEGINTERFERON ALFA-2A [Suspect]
     Dosage: 135 Microgram, qw
     Route: 058
  4. TELAPREVIR [Suspect]
     Indication: HEPATIC CIRRHOSIS

REACTIONS (1)
  - Drug ineffective [Unknown]
